FAERS Safety Report 6010858-0 (Version None)
Quarter: 2008Q4

REPORT INFORMATION
  Report Type: 
  Country: None (occurrence: None)
  Receive Date: 20081218
  Receipt Date: 20081208
  Transmission Date: 20090506
  Serious: Yes (Death, Other)
  Sender: FDA-Public Use
  Company Number: US-CELGENEUS-163-CCAZA-08120917

PATIENT
  Age: 66 Year
  Sex: Male

DRUGS (2)
  1. AZACITIDINE [Suspect]
     Route: 058
  2. AZACITIDINE [Suspect]
     Indication: MYELODYSPLASTIC SYNDROME

REACTIONS (3)
  - BRONCHOPULMONARY ASPERGILLOSIS [None]
  - PANCYTOPENIA [None]
  - RESPIRATORY FAILURE [None]
